FAERS Safety Report 20174590 (Version 2)
Quarter: 2021Q4

REPORT INFORMATION
  Report Type: Spontaneous
  Country: ES (occurrence: ES)
  Receive Date: 20211213
  Receipt Date: 20211216
  Transmission Date: 20220303
  Serious: Yes (Other)
  Sender: FDA-Public Use
  Company Number: ES-AUROBINDO-AUR-APL-2021-049743

PATIENT
  Age: 5 Year
  Sex: Male

DRUGS (6)
  1. LEVETIRACETAM [Suspect]
     Active Substance: LEVETIRACETAM
     Indication: Dyskinesia
     Dosage: 15 MILLIGRAM/KILOGRAM, ONCE A DAY
     Route: 065
  2. LEVETIRACETAM [Suspect]
     Active Substance: LEVETIRACETAM
     Indication: Attention deficit hyperactivity disorder
  3. LEVETIRACETAM [Suspect]
     Active Substance: LEVETIRACETAM
     Indication: ADCY5-related dyskinesia
  4. METHYLPHENIDATE [Suspect]
     Active Substance: METHYLPHENIDATE
     Indication: ADCY5-related dyskinesia
     Dosage: UNK
     Route: 065
  5. METHYLPHENIDATE [Suspect]
     Active Substance: METHYLPHENIDATE
     Indication: Attention deficit hyperactivity disorder
  6. GUANFACINE [Concomitant]
     Active Substance: GUANFACINE
     Indication: ADCY5-related dyskinesia
     Dosage: 3 MILLIGRAM, ONCE A DAY (3 MG / DAY)
     Route: 065

REACTIONS (5)
  - Dyskinesia [Recovering/Resolving]
  - Condition aggravated [Unknown]
  - Off label use [Unknown]
  - Attention deficit hyperactivity disorder [Recovering/Resolving]
  - Drug ineffective [Unknown]
